FAERS Safety Report 9091689 (Version 1)
Quarter: 2013Q1

REPORT INFORMATION
  Report Type: Report from Study
  Country: US (occurrence: US)
  Receive Date: 20130131
  Receipt Date: 20130131
  Transmission Date: 20140127
  Serious: No
  Sender: FDA-Public Use
  Company Number: US-ABBOTT-12P-163-1003806-00

PATIENT
  Sex: Female
  Weight: 63.56 kg

DRUGS (5)
  1. HUMIRA [Suspect]
     Indication: RHEUMATOID ARTHRITIS
     Dates: start: 201111
  2. UNKNOWN BLOOD PRESSURE [Concomitant]
     Indication: HYPERTENSION
  3. UNKNOWN CHOLESTEROL [Concomitant]
     Indication: BLOOD CHOLESTEROL INCREASED
  4. AMBIEN [Concomitant]
     Indication: INSOMNIA
  5. XANAX [Concomitant]
     Indication: ANXIETY

REACTIONS (4)
  - Contusion [Recovered/Resolved]
  - Rash [Not Recovered/Not Resolved]
  - Pruritus [Recovered/Resolved]
  - Diabetes mellitus [Not Recovered/Not Resolved]
